FAERS Safety Report 6158896-1 (Version None)
Quarter: 2009Q2

REPORT INFORMATION
  Report Type: 
  Country: None (occurrence: None)
  Receive Date: 20090417
  Receipt Date: 20090409
  Transmission Date: 20091009
  Serious: Yes (Hospitalization)
  Sender: FDA-Public Use
  Company Number: GB-ABBOTT-09P-167-0567643-00

PATIENT
  Sex: Male

DRUGS (3)
  1. EPILIM SYRUP [Suspect]
     Indication: CONVULSION
     Route: 048
     Dates: start: 20090302, end: 20090313
  2. EPILIM SYRUP [Suspect]
     Dates: start: 20090320
  3. SODIUM BENZOATE [Concomitant]
     Indication: HYPERGLYCAEMIA
     Route: 048
     Dates: start: 20090303

REACTIONS (2)
  - CONDITION AGGRAVATED [None]
  - GYNAECOMASTIA [None]
